FAERS Safety Report 9988120 (Version 2)
Quarter: 2014Q1

REPORT INFORMATION
  Report Type: Spontaneous
  Country: US (occurrence: US)
  Receive Date: 20140308
  Receipt Date: 20140308
  Transmission Date: 20141002
  Serious: Yes (Disabling)
  Sender: FDA-Public Use
  Company Number: US-GE HEALTHCARE MEDICAL DIAGNOSTICS-OSCN-PR-0903S-0138

PATIENT
  Sex: Male

DRUGS (7)
  1. OMNISCAN [Suspect]
     Indication: TRANSPLANT EVALUATION
     Route: 042
     Dates: start: 19990111, end: 19990111
  2. GADOLINIUM (UNSPECIFIED) [Suspect]
     Indication: TRANSPLANT EVALUATION
     Route: 042
     Dates: start: 19980303, end: 19980303
  3. GADOLINIUM (UNSPECIFIED) [Suspect]
     Route: 042
     Dates: start: 19920123, end: 19920123
  4. GADOLINIUM (UNSPECIFIED) [Suspect]
     Route: 042
     Dates: start: 19980311, end: 19980311
  5. GADOLINIUM (UNSPECIFIED) [Suspect]
     Route: 042
     Dates: start: 19980317, end: 19980317
  6. GADOLINIUM (UNSPECIFIED) [Suspect]
     Route: 042
     Dates: start: 19900322, end: 19900322
  7. PROHANCE [Suspect]
     Indication: ASTHENIA
     Route: 042
     Dates: start: 20060815, end: 20060815

REACTIONS (1)
  - Nephrogenic systemic fibrosis [Not Recovered/Not Resolved]
